FAERS Safety Report 9484984 (Version 1)
Quarter: 2013Q3

REPORT INFORMATION
  Report Type: Spontaneous
  Country: US (occurrence: US)
  Receive Date: 20130828
  Receipt Date: 20130828
  Transmission Date: 20140515
  Serious: No
  Sender: FDA-Public Use
  Company Number: US-ABBOTT-13P-163-1119081-00

PATIENT
  Age: 59 Year
  Sex: Male
  Weight: 101.7 kg

DRUGS (4)
  1. ANDROGEL [Suspect]
     Indication: BLOOD TESTOSTERONE DECREASED
     Dosage: TWO PUMPS
     Route: 048
     Dates: start: 20130703
  2. KLONAZAPAM [Concomitant]
     Indication: SLEEP APNOEA SYNDROME
  3. PRAVASTATIN [Concomitant]
     Indication: BLOOD CHOLESTEROL INCREASED
  4. FLUOXITINE [Concomitant]
     Indication: ANXIETY

REACTIONS (1)
  - Weight increased [Unknown]
